FAERS Safety Report 9217010 (Version 1)
Quarter: 2013Q2

REPORT INFORMATION
  Report Type: Spontaneous
  Country: US (occurrence: US)
  Receive Date: 20130408
  Receipt Date: 20130408
  Transmission Date: 20140414
  Serious: Yes (Hospitalization)
  Sender: FDA-Public Use
  Company Number: US-NOVOPROD-374554

PATIENT
  Age: 74 Year
  Sex: Female
  Weight: 97.51 kg

DRUGS (7)
  1. VICTOZA [Suspect]
     Indication: TYPE 2 DIABETES MELLITUS
     Dosage: 1.8 MG QD
     Route: 058
     Dates: start: 20130319, end: 20130321
  2. LEVEMIR [Concomitant]
     Indication: TYPE 2 DIABETES MELLITUS
     Dosage: 40 U BID
     Route: 058
  3. LEVEMIR [Concomitant]
     Dosage: 20 U BID
     Route: 058
  4. LEVEMIR [Concomitant]
     Dosage: 20 U QD
     Route: 058
  5. HUMALOG [Concomitant]
     Indication: TYPE 2 DIABETES MELLITUS
     Dosage: 15 U TIDAC
     Route: 058
  6. ATENOLOL [Concomitant]
     Indication: HYPERTENSION
     Dosage: 50 MG QD
     Route: 048
  7. LISINOPRIL [Concomitant]
     Indication: HYPERTENSION
     Dosage: 40 MG QD
     Route: 048

REACTIONS (1)
  - Diabetic ketoacidosis [Recovered/Resolved]
